FAERS Safety Report 21565723 (Version 1)
Quarter: 2022Q4

REPORT INFORMATION
  Report Type: Spontaneous
  Country: AT (occurrence: AT)
  Receive Date: 20221108
  Receipt Date: 20221108
  Transmission Date: 20230113
  Serious: Yes (Other)
  Sender: FDA-Public Use
  Company Number: AT-Accord-284923

PATIENT
  Age: 68 Year
  Sex: Male

DRUGS (4)
  1. OXALIPLATIN [Suspect]
     Active Substance: OXALIPLATIN
     Indication: Oesophageal adenocarcinoma
     Dates: start: 202103, end: 202106
  2. NIVOLUMAB [Concomitant]
     Active Substance: NIVOLUMAB
     Indication: Oesophageal adenocarcinoma
     Dosage: NIVOLUMAB (Q2W)
     Dates: start: 202103
  3. FLUOROURACIL [Concomitant]
     Active Substance: FLUOROURACIL
     Indication: Oesophageal adenocarcinoma
     Dates: start: 202103
  4. LEUCOVORIN [Concomitant]
     Active Substance: LEUCOVORIN
     Indication: Oesophageal adenocarcinoma
     Dates: start: 202103, end: 202106

REACTIONS (2)
  - Polyneuropathy [Unknown]
  - Off label use [Unknown]

NARRATIVE: CASE EVENT DATE: 20210601
